FAERS Safety Report 12695618 (Version 1)
Quarter: 2016Q3

REPORT INFORMATION
  Report Type: Spontaneous
  Country: None (occurrence: US)
  Receive Date: 20160829
  Receipt Date: 20160829
  Transmission Date: 20161109
  Serious: No
  Sender: FDA-Public Use
  Company Number: US-KALEO, INC-AUVI20160007

PATIENT
  Age: 58 Year
  Sex: Male

DRUGS (1)
  1. AUVI-Q [Suspect]
     Active Substance: EPINEPHRINE
     Indication: ALLERGY TO ARTHROPOD STING
     Dosage: ONCE, IM OR SC
     Dates: start: 20160705, end: 20160705

REACTIONS (5)
  - Chest discomfort [None]
  - Chest pain [None]
  - Palpitations [None]
  - Hypoaesthesia [None]
  - Dizziness [None]

NARRATIVE: CASE EVENT DATE: 20160705
